FAERS Safety Report 18490688 (Version 1)
Quarter: 2020Q4

REPORT INFORMATION
  Report Type: Spontaneous
  Country: US (occurrence: US)
  Receive Date: 20201111
  Receipt Date: 20201111
  Transmission Date: 20210114
  Serious: Yes (Hospitalization)
  Sender: FDA-Public Use
  Company Number: None

PATIENT
  Age: 44 Year
  Sex: Male
  Weight: 63.5 kg

DRUGS (1)
  1. TEMOZOLOMIDE (362856) [Suspect]
     Active Substance: TEMOZOLOMIDE
     Dates: end: 20170418

REACTIONS (7)
  - Impaired healing [None]
  - Candida infection [None]
  - Disease progression [None]
  - Blood culture positive [None]
  - Culture wound positive [None]
  - Meningitis bacterial [None]
  - Staphylococcal infection [None]

NARRATIVE: CASE EVENT DATE: 20200324
